FAERS Safety Report 6493835-5 (Version None)
Quarter: 2009Q4

REPORT INFORMATION
  Report Type: 
  Country: None (occurrence: None)
  Receive Date: 20091214
  Receipt Date: 20081110
  Transmission Date: 20100525
  Serious: No
  Sender: FDA-Public Use
  Company Number: US-BRISTOL-MYERS SQUIBB COMPANY-14401137

PATIENT
  Sex: Female
  Weight: 77 kg

DRUGS (5)
  1. ABILIFY [Suspect]
     Dosage: BEGAN WITH 2 MG ABOUT 10-11 YEARS AGO AND INCREASED TO 5 MG QD
  2. NAPROXEN [Concomitant]
  3. TOPAMAX [Concomitant]
  4. TEMAZEPAM [Concomitant]
  5. VICODIN [Concomitant]

REACTIONS (4)
  - BURNING SENSATION [None]
  - DYSPHAGIA [None]
  - NAUSEA [None]
  - VOMITING [None]
